FAERS Safety Report 7543753-6 (Version None)
Quarter: 2011Q2

REPORT INFORMATION
  Report Type: 
  Country: None (occurrence: None)
  Receive Date: 20110613
  Receipt Date: 20040723
  Transmission Date: 20111010
  Serious: Yes (Hospitalization)
  Sender: FDA-Public Use
  Company Number: PHHO2004JP07973

PATIENT
  Sex: Male
  Weight: 53 kg

DRUGS (9)
  1. CARVEDILOL [Concomitant]
  2. ASPIRIN [Concomitant]
  3. SIGMART [Concomitant]
  4. LIPITOR [Concomitant]
  5. DIOVAN [Suspect]
     Indication: HYPERTENSION
     Dosage: 80 MG/DAY
     Route: 048
     Dates: start: 20030207, end: 20030217
  6. DIOVAN [Suspect]
     Dosage: 80 MG / DAY
     Route: 048
     Dates: start: 20030603
  7. GLYBURIDE [Concomitant]
  8. METFORMIN HCL [Concomitant]
  9. METFORMIN HCL [Concomitant]

REACTIONS (5)
  - DYSPNOEA [None]
  - LEFT VENTRICULAR FAILURE [None]
  - ATRIAL FIBRILLATION [None]
  - ARTERIAL STENOSIS [None]
  - PALPITATIONS [None]
